FAERS Safety Report 15690305 (Version 2)
Quarter: 2021Q1

REPORT INFORMATION
  Report Type: Spontaneous
  Country: US (occurrence: US)
  Receive Date: 20181205
  Receipt Date: 20210226
  Transmission Date: 20210419
  Serious: Yes (Hospitalization, Other)
  Sender: FDA-Public Use
  Company Number: US-SANIK-2018SA328657AA

PATIENT
  Age: 71 Year
  Sex: Male
  Weight: 106.59 kg

DRUGS (6)
  1. FUROSEMIDE. [Concomitant]
     Active Substance: FUROSEMIDE
     Dosage: 80MG
  2. JANUMET [Concomitant]
     Active Substance: METFORMIN HYDROCHLORIDE\SITAGLIPTIN PHOSPHATE
     Dosage: 2) DAILY (AM/PM)
  3. METOPROLOL. [Concomitant]
     Active Substance: METOPROLOL
     Dosage: 100 MG, BID
  4. KLOR?CON [Concomitant]
     Active Substance: POTASSIUM CHLORIDE
     Dosage: 10 MG, BID
  5. PLAVIX [Suspect]
     Active Substance: CLOPIDOGREL BISULFATE
     Indication: ATRIAL FIBRILLATION
     Dosage: 75 MG, QD
     Route: 048
     Dates: start: 1997, end: 2018
  6. ELIQUIS [Concomitant]
     Active Substance: APIXABAN
     Dosage: 5 MG, BID

REACTIONS (4)
  - Sepsis [Unknown]
  - Atrial fibrillation [Unknown]
  - Ageusia [Unknown]
  - Anosmia [Unknown]

NARRATIVE: CASE EVENT DATE: 2018
